FAERS Safety Report 6969708-8 (Version None)
Quarter: 2010Q3

REPORT INFORMATION
  Report Type: 
  Country: None (occurrence: None)
  Receive Date: 20100908
  Receipt Date: 20100830
  Transmission Date: 20110219
  Serious: Yes (Hospitalization)
  Sender: FDA-Public Use
  Company Number: DE-BIOGENIDEC-2010BI029865

PATIENT
  Age: 28 Year
  Sex: Male

DRUGS (2)
  1. TYSABRI [Suspect]
     Indication: RELAPSING-REMITTING MULTIPLE SCLEROSIS
     Route: 042
     Dates: start: 20080601, end: 20081201
  2. TYSABRI [Suspect]
     Route: 042
     Dates: start: 20090421

REACTIONS (3)
  - MULTI-ORGAN FAILURE [None]
  - MULTIPLE SCLEROSIS RELAPSE [None]
  - SEPSIS [None]
